FAERS Safety Report 10469369 (Version 2)
Quarter: 2014Q3

REPORT INFORMATION
  Report Type: Spontaneous
  Country: US (occurrence: US)
  Receive Date: 20140923
  Receipt Date: 20140923
  Transmission Date: 20150326
  Serious: Yes (Other)
  Sender: FDA-Public Use
  Company Number: PHHY2014US115035

PATIENT
  Age: 12 Year
  Sex: Female

DRUGS (14)
  1. OXCARBAZEPINE. [Suspect]
     Active Substance: OXCARBAZEPINE
     Dosage: UNK UKN, UNK
  2. DIAZEPAM. [Suspect]
     Active Substance: DIAZEPAM
     Dosage: UNK UKN, UNK
  3. NEXIUM I.V. [Suspect]
     Active Substance: ESOMEPRAZOLE SODIUM
     Dosage: UNK UKN, UNK
  4. CYPROHEPTADINE. [Suspect]
     Active Substance: CYPROHEPTADINE
     Dosage: UNK UKN, UNK
  5. NASONEX [Suspect]
     Active Substance: MOMETASONE FUROATE
     Dosage: UNK UKN, UNK
  6. OXYBUTYNIN [Suspect]
     Active Substance: OXYBUTYNIN
     Dosage: UNK UKN, UNK
  7. VENTOLIN [Suspect]
     Active Substance: ALBUTEROL SULFATE
     Dosage: UNK UKN, UNK
  8. LEVETIRACETAM. [Suspect]
     Active Substance: LEVETIRACETAM
     Dosage: UNK UKN, UNK
  9. DRISDOL [Suspect]
     Active Substance: ERGOCALCIFEROL
     Dosage: UNK UKN, UNK
  10. BISACODYL. [Suspect]
     Active Substance: BISACODYL
     Dosage: UNK UKN, UNK
  11. HYDROCHLOROTHIAZIDE. [Suspect]
     Active Substance: HYDROCHLOROTHIAZIDE
     Dosage: UNK UKN, UNK
  12. VIMPAT [Suspect]
     Active Substance: LACOSAMIDE
     Dosage: UNK UKN, UNK
  13. LIORESAL [Suspect]
     Active Substance: BACLOFEN
     Indication: MUSCLE SPASTICITY
     Dosage: 290 UG, PER DAY
     Route: 037
  14. HYDRALAZINE [Suspect]
     Active Substance: HYDRALAZINE HYDROCHLORIDE
     Dosage: UNK UKN, UNK

REACTIONS (9)
  - Convulsion [Unknown]
  - Muscle spasms [Unknown]
  - Pyrexia [Unknown]
  - Therapeutic response decreased [Unknown]
  - Drooling [Unknown]
  - Myoclonus [Unknown]
  - Drug withdrawal syndrome [Unknown]
  - Altered state of consciousness [Unknown]
  - Pain [Unknown]

NARRATIVE: CASE EVENT DATE: 201405
